FAERS Safety Report 5748974-0 (Version None)
Quarter: 2008Q2

REPORT INFORMATION
  Report Type: 
  Country: None (occurrence: None)
  Receive Date: 20080527
  Receipt Date: 20080521
  Transmission Date: 20081010
  Serious: Yes (Life-Threatening)
  Sender: FDA-Public Use
  Company Number: US-BRISTOL-MYERS SQUIBB COMPANY-14201263

PATIENT

DRUGS (3)
  1. ABILIFY [Suspect]
     Dosage: 1 DOSAGE FORM = EITHER 5 MG OR 10 MG DAILY FOR 2 WEEKS.
  2. AMBIEN [Concomitant]
  3. TEGRETOL [Concomitant]

REACTIONS (1)
  - STEVENS-JOHNSON SYNDROME [None]
